FAERS Safety Report 14448458 (Version 3)
Quarter: 2018Q1

REPORT INFORMATION
  Report Type: Spontaneous
  Country: US (occurrence: US)
  Receive Date: 20180126
  Receipt Date: 20180305
  Transmission Date: 20180509
  Serious: No
  Sender: FDA-Public Use
  Company Number: US-SUNOVION-2018SUN000104

PATIENT
  Age: 9 Year
  Sex: Male
  Weight: 39.2 kg

DRUGS (5)
  1. VITAMINS [Concomitant]
     Active Substance: VITAMINS
     Dosage: UNK
  2. LATUDA [Suspect]
     Active Substance: LURASIDONE HYDROCHLORIDE
     Indication: ANXIETY
     Dosage: 30 MG, UNK (HALF 20 MG TABLET IN THE MORNING AND A FULL 20 MG TABLET AT BED TIME)
     Route: 048
     Dates: start: 201705
  3. LATUDA [Suspect]
     Active Substance: LURASIDONE HYDROCHLORIDE
     Indication: AFFECTIVE DISORDER
  4. LATUDA [Suspect]
     Active Substance: LURASIDONE HYDROCHLORIDE
     Indication: HOSTILITY
  5. LATUDA [Suspect]
     Active Substance: LURASIDONE HYDROCHLORIDE
     Indication: DECREASED APPETITE

REACTIONS (10)
  - Disturbance in attention [Unknown]
  - Off label use [Unknown]
  - Insomnia [Unknown]
  - Emotional disorder [Not Recovered/Not Resolved]
  - Drug dose omission [Unknown]
  - Psychomotor hyperactivity [Unknown]
  - Sleep disorder [Not Recovered/Not Resolved]
  - Agitation [Unknown]
  - Decreased appetite [Not Recovered/Not Resolved]
  - Aggression [Not Recovered/Not Resolved]

NARRATIVE: CASE EVENT DATE: 20180107
